FAERS Safety Report 5471487-0 (Version None)
Quarter: 2007Q3

REPORT INFORMATION
  Report Type: 
  Country: None (occurrence: None)
  Receive Date: 20070928
  Receipt Date: 20061111
  Transmission Date: 20080115
  Serious: No
  Sender: FDA-Public Use
  Company Number: US-BRISTOL-MYERS SQUIBB COMPANY-13576848

PATIENT
  Age: 44 Year
  Sex: Male
  Weight: 128 kg

DRUGS (11)
  1. DEFINITY [Suspect]
     Indication: ECHOCARDIOGRAM
     Route: 040
     Dates: start: 20061031
  2. FUROSEMIDE [Concomitant]
  3. NEOMYCIN [Concomitant]
  4. NADOLOL [Concomitant]
  5. RABEPRAZOLE SODIUM [Concomitant]
  6. ZINC [Concomitant]
  7. GUAIFENESIN [Concomitant]
  8. HYDROCHLOROTHIAZIDE [Concomitant]
  9. LACTULOSE [Concomitant]
  10. FOLIC ACID [Concomitant]
  11. VITAMINS [Concomitant]

REACTIONS (1)
  - BACK PAIN [None]
